FAERS Safety Report 8553800-0 (Version None)
Quarter: 2012Q3

REPORT INFORMATION
  Report Type: 
  Country: None (occurrence: None)
  Receive Date: 20120725
  Receipt Date: 20120725
  Transmission Date: 20120928
  Serious: Yes (Other)
  Sender: FDA-Public Use
  Company Number: None

PATIENT
  Sex: Female

DRUGS (4)
  1. ALBUTEROL [Concomitant]
  2. PREDNISONE [Concomitant]
  3. BENZONATATE [Suspect]
     Indication: BRONCHITIS
     Dosage: 100 MG THREE A DAY PO
     Route: 048
  4. AZITRHOMYCIN [Concomitant]

REACTIONS (2)
  - MYALGIA [None]
  - HYPOAESTHESIA [None]
